FAERS Safety Report 5293835-7 (Version None)
Quarter: 2007Q2

REPORT INFORMATION
  Report Type: 
  Country: None (occurrence: None)
  Receive Date: 20070405
  Receipt Date: 20070327
  Transmission Date: 20071010
  Serious: Yes (Hospitalization)
  Sender: FDA-Public Use
  Company Number: 2007AL001255

PATIENT
  Age: 19 Year
  Sex: Female

DRUGS (2)
  1. FLUOXETINE [Suspect]
  2. MAXALT [Concomitant]

REACTIONS (7)
  - DRUG INTERACTION [None]
  - HYPERTENSION [None]
  - HYPOTENSION [None]
  - NAUSEA [None]
  - RESPIRATORY DISTRESS [None]
  - SEROTONIN SYNDROME [None]
  - TACHYCARDIA [None]
